FAERS Safety Report 17389903 (Version 1)
Quarter: 2020Q1

REPORT INFORMATION
  Report Type: Spontaneous
  Country: GB (occurrence: GB)
  Receive Date: 20200207
  Receipt Date: 20200207
  Transmission Date: 20200409
  Serious: Yes (Hospitalization)
  Sender: FDA-Public Use
  Company Number: NVSC2020GB030196

PATIENT
  Age: 27 Year
  Sex: Male

DRUGS (5)
  1. CODEINE [Suspect]
     Active Substance: CODEINE
     Dosage: 8 MG (32 CO-CODAMOL TABLETS-8MG PER TABLET)
     Route: 048
  2. CANNABIS [Suspect]
     Active Substance: CANNABIS SATIVA SUBSP. INDICA TOP
     Indication: PRODUCT USED FOR UNKNOWN INDICATION
     Dosage: UNK
     Route: 065
  3. ACETAMINOPHEN (PARACETAMOL) [Suspect]
     Active Substance: ACETAMINOPHEN
     Indication: PRODUCT USED FOR UNKNOWN INDICATION
     Dosage: 500 MG (30 CO-CODAMOL TABLETS- 500 MG PER TABLET)
     Route: 048
  4. ACETAMINOPHEN (PARACETAMOL) [Suspect]
     Active Substance: ACETAMINOPHEN
     Dosage: 500 MG (32 CO-CODAMOL TABLETS-500 MG PER TABLET
     Route: 048
  5. CODEINE [Suspect]
     Active Substance: CODEINE
     Indication: PRODUCT USED FOR UNKNOWN INDICATION
     Dosage: 12.8 MG (30 CO-CODAMOL TABLETS- 12.8 MG PER TABLET)
     Route: 048

REACTIONS (3)
  - Panic attack [Unknown]
  - Toxicity to various agents [Unknown]
  - Intentional overdose [Unknown]
